FAERS Safety Report 5781765-3 (Version None)
Quarter: 2008Q2

REPORT INFORMATION
  Report Type: 
  Country: None (occurrence: None)
  Receive Date: 20080623
  Receipt Date: 20080612
  Transmission Date: 20081010
  Serious: Yes (Other)
  Sender: FDA-Public Use
  Company Number: US-BAYER-200714047BCC

PATIENT
  Age: 63 Year
  Sex: Female
  Weight: 62 kg

DRUGS (7)
  1. ASPIRIN [Suspect]
     Indication: PAIN
     Dosage: TOTAL DAILY DOSE: 162 MG  UNIT DOSE: 81 MG
     Route: 048
     Dates: start: 20071103
  2. LISINOPRIL [Concomitant]
     Indication: HYPERTENSION
  3. ZANTAC [Concomitant]
     Indication: ABDOMINAL PAIN UPPER
     Route: 048
  4. ZOLOFT [Concomitant]
  5. ZOLOFT [Concomitant]
  6. BACTROBAN [Concomitant]
     Route: 061
  7. DETROL LA [Concomitant]

REACTIONS (10)
  - ABDOMINAL PAIN UPPER [None]
  - ASTHENIA [None]
  - FAECES DISCOLOURED [None]
  - GASTRIC HAEMORRHAGE [None]
  - HAEMATEMESIS [None]
  - MALAISE [None]
  - MELANOCYTIC NAEVUS [None]
  - MYALGIA [None]
  - ORAL INTAKE REDUCED [None]
  - UPPER GASTROINTESTINAL HAEMORRHAGE [None]
